FAERS Safety Report 13038950 (Version 1)
Quarter: 2016Q4

REPORT INFORMATION
  Report Type: Spontaneous
  Country: BR (occurrence: BR)
  Receive Date: 20161219
  Receipt Date: 20161219
  Transmission Date: 20170207
  Serious: Yes (Other)
  Sender: FDA-Public Use
  Company Number: BR-009507513-1601BRA001329

PATIENT
  Age: 27 Year
  Sex: Female
  Weight: 66 kg

DRUGS (1)
  1. NUVARING [Suspect]
     Active Substance: ETHINYL ESTRADIOL\ETONOGESTREL
     Indication: CONTRACEPTION
     Dosage: ONE RING, FOR 21 DAYS, WITH 7 DAYS FOR FREE INTERVAL
     Route: 067
     Dates: start: 201210

REACTIONS (6)
  - Varicose vein operation [Recovered/Resolved]
  - Incorrect drug administration duration [Unknown]
  - Incorrect drug administration duration [Recovered/Resolved]
  - Menstruation delayed [Recovered/Resolved]
  - Breast mass [Not Recovered/Not Resolved]
  - Breast cyst [Unknown]

NARRATIVE: CASE EVENT DATE: 2015
